FAERS Safety Report 12398575 (Version 9)
Quarter: 2020Q1

REPORT INFORMATION
  Report Type: Report from Study
  Country: JP (occurrence: JP)
  Receive Date: 20160524
  Receipt Date: 20200316
  Transmission Date: 20200409
  Serious: Yes (Hospitalization, Other)
  Sender: FDA-Public Use
  Company Number: JP-INCYTE CORPORATION-2015IN005167

PATIENT

DRUGS (10)
  1. JAKAVI [Suspect]
     Active Substance: RUXOLITINIB
     Indication: MYELOFIBROSIS
     Dosage: 30 MG, UNK
     Route: 048
     Dates: start: 20140723, end: 20141227
  2. RED CELLS CONCENTRATES-LEUKOCYTES REDUCED [Concomitant]
     Active Substance: HUMAN RED BLOOD CELL
     Indication: MYELOFIBROSIS
     Dosage: 2 IU, UNK
     Route: 065
  3. JAKAVI [Suspect]
     Active Substance: RUXOLITINIB
     Dosage: 10 MG, BID
     Route: 048
     Dates: start: 20170328, end: 20171126
  4. LINEZOLID. [Suspect]
     Active Substance: LINEZOLID
     Indication: PNEUMONIA BACTERIAL
     Dosage: 1200 MG
     Route: 042
     Dates: start: 20180105, end: 20180114
  5. JAKAVI [Suspect]
     Active Substance: RUXOLITINIB
     Dosage: 10 MG, BID
     Route: 048
     Dates: start: 20160705, end: 20170317
  6. JAKAVI [Suspect]
     Active Substance: RUXOLITINIB
     Dosage: 15 MG, BID
     Route: 048
     Dates: start: 20150114, end: 20151124
  7. JAKAVI [Suspect]
     Active Substance: RUXOLITINIB
     Dosage: 10 MG, BID
     Route: 048
     Dates: start: 20151204, end: 20160626
  8. JAKAVI [Suspect]
     Active Substance: RUXOLITINIB
     Dosage: 10 MG, BID
     Route: 048
     Dates: start: 20171206, end: 20171206
  9. JAKAVI [Suspect]
     Active Substance: RUXOLITINIB
     Dosage: 5 MG, BID
     Route: 048
     Dates: start: 20171130, end: 20171130
  10. PLATELETS [Concomitant]
     Active Substance: HUMAN PLATELET, ALLOGENIC
     Indication: MYELOFIBROSIS
     Dosage: 200 ML
     Route: 042
     Dates: start: 20180109

REACTIONS (17)
  - Haemoglobin decreased [Unknown]
  - Myelofibrosis [Not Recovered/Not Resolved]
  - Burkholderia cepacia complex infection [Recovering/Resolving]
  - Platelet count decreased [Not Recovered/Not Resolved]
  - Blood pressure systolic increased [Unknown]
  - White blood cell count decreased [Unknown]
  - Pyrexia [Recovered/Resolved]
  - Stomatitis [Recovered/Resolved]
  - Bone marrow failure [Not Recovered/Not Resolved]
  - Bacterial sepsis [Recovering/Resolving]
  - Concomitant disease aggravated [Unknown]
  - Pneumonia [Recovering/Resolving]
  - Gastroenteritis clostridial [Recovering/Resolving]
  - Haemoptysis [Recovering/Resolving]
  - Rales [Unknown]
  - Pneumonia bacterial [Recovering/Resolving]
  - Stomatitis [Recovered/Resolved]

NARRATIVE: CASE EVENT DATE: 20150121
